FAERS Safety Report 20688372 (Version 2)
Quarter: 2022Q2

REPORT INFORMATION
  Report Type: Spontaneous
  Country: US (occurrence: US)
  Receive Date: 20220408
  Receipt Date: 20220506
  Transmission Date: 20220721
  Serious: Yes (Hospitalization)
  Sender: FDA-Public Use
  Company Number: US-Global Blood Therapeutics Inc-US-GBT-22-01749

PATIENT
  Age: 54 Year
  Sex: Female

DRUGS (3)
  1. OXBRYTA [Suspect]
     Active Substance: VOXELOTOR
     Indication: Product used for unknown indication
     Route: 048
  2. TRANSFUSION [Concomitant]
     Indication: Full blood count decreased
     Dosage: NOT PROVIDED
  3. TRANSFUSION [Concomitant]
     Dosage: THREE UNITS OF BLOOD
     Dates: start: 202204, end: 202204

REACTIONS (6)
  - Sickle cell anaemia with crisis [Unknown]
  - Full blood count decreased [Unknown]
  - Stress [Unknown]
  - Decreased appetite [Unknown]
  - Therapy interrupted [Unknown]
  - Product dose omission issue [Unknown]

NARRATIVE: CASE EVENT DATE: 20220301
